FAERS Safety Report 25445601 (Version 2)
Quarter: 2025Q3

REPORT INFORMATION
  Report Type: Spontaneous
  Country: US (occurrence: US)
  Receive Date: 20250617
  Receipt Date: 20250805
  Transmission Date: 20251021
  Serious: No
  Sender: COSETTE PHARMACEUTICALS INC
  Company Number: US-COSETTE-CP2025US000562

PATIENT
  Age: 57 Year
  Sex: Female

DRUGS (10)
  1. BENICAR [Suspect]
     Active Substance: OLMESARTAN MEDOXOMIL
     Indication: Product used for unknown indication
     Route: 065
     Dates: end: 2025
  2. TYVASO [Suspect]
     Active Substance: TREPROSTINIL
     Indication: Pulmonary arterial hypertension
     Dates: start: 202505, end: 202505
  3. TYVASO [Suspect]
     Active Substance: TREPROSTINIL
     Indication: Connective tissue disorder
     Dosage: 6 BREATHS, DELIVERED BY TYVASO INHALATION DEVICE (TD-300/A)
     Dates: start: 20250602
  4. TYVASO [Suspect]
     Active Substance: TREPROSTINIL
     Dates: start: 202505, end: 20250602
  5. TYVASO [Suspect]
     Active Substance: TREPROSTINIL
     Dosage: 24 UG FIRST DOSE, 36 UG SECOND AND THIRD DOSE AND 24 UG LAST D 24 UG LAST DOSE, INHALATION
     Dates: start: 20250505
  6. TYVASO [Suspect]
     Active Substance: TREPROSTINIL
     Dosage: 7 BREATHS
     Dates: start: 202506, end: 2025
  7. TYVASO [Suspect]
     Active Substance: TREPROSTINIL
     Dosage: 10 BREATHS
     Dates: start: 2025
  8. TYVASO [Suspect]
     Active Substance: TREPROSTINIL
     Dates: start: 20250505
  9. TYVASO [Suspect]
     Active Substance: TREPROSTINIL
     Dosage: 5 BREATHS, THEN INCREASED TO 6 BREATHS QID
     Dates: start: 20250602
  10. XARELTO [Suspect]
     Active Substance: RIVAROXABAN
     Indication: Product used for unknown indication
     Route: 065

REACTIONS (10)
  - Cough [Recovering/Resolving]
  - Diarrhoea [Unknown]
  - Pharyngeal swelling [Recovered/Resolved]
  - Dysphagia [Recovered/Resolved]
  - Pharyngeal hypoaesthesia [Recovered/Resolved]
  - Productive cough [Recovered/Resolved]
  - Respiratory tract congestion [Recovered/Resolved]
  - Peripheral swelling [Unknown]
  - Hypotension [Unknown]
  - Dizziness [Unknown]

NARRATIVE: CASE EVENT DATE: 20250101
